FAERS Safety Report 23593200 (Version 1)
Quarter: 2024Q1

REPORT INFORMATION
  Report Type: Report from Study
  Country: US (occurrence: US)
  Receive Date: 20240304
  Receipt Date: 20240304
  Transmission Date: 20240409
  Serious: Yes (Hospitalization, Disabling)
  Sender: FDA-Public Use
  Company Number: US-THERATECHNOLOGIES INC.-2024-THE-IBA-000063

PATIENT
  Age: 64 Year
  Sex: Male

DRUGS (19)
  1. IBALIZUMAB [Suspect]
     Active Substance: IBALIZUMAB
     Indication: HIV infection
     Dosage: UNK, LOADING DOSE AT INITIATION
     Route: 065
     Dates: start: 20230322, end: 20230322
  2. LENACAPAVIR [Concomitant]
     Active Substance: LENACAPAVIR
     Indication: Antiretroviral therapy
     Dosage: 3 ML, Q6M
     Route: 048
     Dates: start: 20230317
  3. PRAVASTATIN [Concomitant]
     Active Substance: PRAVASTATIN
     Indication: Hypercholesterolaemia
     Dosage: 3 ML, Q6M
     Route: 048
     Dates: start: 20190418
  4. VALTREX [Concomitant]
     Active Substance: VALACYCLOVIR HYDROCHLORIDE
     Indication: Herpes virus infection
     Dosage: 1 TABLET, PRN
     Route: 048
     Dates: start: 20180616, end: 20230323
  5. CHOLECALCIFEROL [Concomitant]
     Active Substance: CHOLECALCIFEROL
     Indication: Vitamin D deficiency
     Dosage: 1250 ?G, WEEKLY
     Route: 048
     Dates: start: 20200123
  6. DICLOFENAC SODIUM [Concomitant]
     Active Substance: DICLOFENAC\DICLOFENAC SODIUM
     Indication: Neuralgia
     Dosage: 3 %, BID
     Route: 062
     Dates: start: 20201028
  7. DICLOFENAC SODIUM [Concomitant]
     Active Substance: DICLOFENAC\DICLOFENAC SODIUM
     Indication: Arthralgia
  8. THIAMINE HYDROCHLORIDE [Concomitant]
     Active Substance: THIAMINE HYDROCHLORIDE
     Indication: General symptom
     Dosage: 100 MG, QD
     Route: 048
     Dates: start: 20210120
  9. THIAMINE HYDROCHLORIDE [Concomitant]
     Active Substance: THIAMINE HYDROCHLORIDE
     Indication: Arthralgia
  10. PANTOPRAZOLE [Concomitant]
     Active Substance: PANTOPRAZOLE
     Indication: Eosinophilic oesophagitis
     Dosage: 40 MG, QD
     Route: 048
     Dates: start: 20190418
  11. VITAMIN D2 [Concomitant]
     Active Substance: ERGOCALCIFEROL
     Indication: Vitamin D deficiency
     Dosage: 1250 ?G, WEEKLY
     Route: 048
     Dates: start: 20190718
  12. MUPIROCIN [Concomitant]
     Active Substance: MUPIROCIN
     Indication: Skin bacterial infection
     Dosage: 2 %, BID
     Route: 061
     Dates: start: 20200430
  13. OLMESARTAN [Concomitant]
     Active Substance: OLMESARTAN
     Indication: Blood pressure increased
     Dosage: 20 MG, QD
     Route: 048
     Dates: start: 20230301
  14. XARELTO [Concomitant]
     Active Substance: RIVAROXABAN
     Indication: Deep vein thrombosis
     Dosage: 15 MG, QD
     Route: 048
     Dates: start: 20230614
  15. ATORVASTATIN [Concomitant]
     Active Substance: ATORVASTATIN
     Indication: Hypercholesterolaemia
     Dosage: 40 MG, QD
     Route: 048
     Dates: start: 20230913
  16. ELIQUIS [Concomitant]
     Active Substance: APIXABAN
     Indication: Deep vein thrombosis
     Dosage: 5 MG, QD
     Route: 048
     Dates: start: 20230626
  17. THIAMINE MONONITRATE [Concomitant]
     Active Substance: THIAMINE MONONITRATE
     Indication: Neuropathy peripheral
     Dosage: 100 MG, BID
     Route: 048
     Dates: start: 20230615
  18. ASPIRIN [Concomitant]
     Active Substance: ASPIRIN
     Indication: Pain
     Dosage: 81 MG, QD
     Route: 048
     Dates: start: 20230608
  19. DEBROX [CELECOXIB] [Concomitant]
     Indication: Cerumen impaction
     Dosage: 5 DROP, PRN
     Route: 065
     Dates: start: 20230913

REACTIONS (1)
  - Ischaemic stroke [Not Recovered/Not Resolved]

NARRATIVE: CASE EVENT DATE: 20240214
